FAERS Safety Report 8833610 (Version 1)
Quarter: 2012Q4

REPORT INFORMATION
  Report Type: 
  Country: GB (occurrence: GB)
  Receive Date: 20121010
  Receipt Date: 20121010
  Transmission Date: 20130627
  Serious: Yes (Other)
  Sender: FDA-Public Use
  Company Number: GB-JNJFOC-20121002972

PATIENT
  Age: 43 Year
  Sex: Female

DRUGS (5)
  1. DOXORUBICIN [Suspect]
     Indication: AESTHESIONEUROBLASTOMA
     Route: 042
  2. VINCRISTINE [Suspect]
     Indication: AESTHESIONEUROBLASTOMA
     Route: 065
  3. IFOSFAMIDE [Suspect]
     Indication: AESTHESIONEUROBLASTOMA
     Route: 065
  4. ETOPOSIDE [Suspect]
     Indication: AESTHESIONEUROBLASTOMA
     Route: 065
  5. RADIOTHERAPY [Suspect]
     Indication: AESTHESIONEUROBLASTOMA
     Dosage: 60 Gy in 30 fractions to her skull base
     Route: 065

REACTIONS (2)
  - Blindness [Unknown]
  - Off label use [Unknown]
